FAERS Safety Report 4445581-7 (Version None)
Quarter: 2004Q3

REPORT INFORMATION
  Report Type: 
  Country: None (occurrence: None)
  Receive Date: 20040902
  Receipt Date: 20040817
  Transmission Date: 20050211
  Serious: Yes (Hospitalization)
  Sender: FDA-Public Use
  Company Number: RB-887-2004

PATIENT
  Age: 19 Year
  Sex: Female

DRUGS (3)
  1. BUPRENORPHINE HCL [Suspect]
     Dosage: 4 MG PO
     Route: 048
     Dates: start: 20030904
  2. SEROQUEL [Concomitant]
  3. VENLAFAXINE HCL [Concomitant]

REACTIONS (5)
  - DISINHIBITION [None]
  - ELEVATED MOOD [None]
  - HYPOMANIA [None]
  - SLEEP DISORDER [None]
  - SPEECH DISORDER [None]
